FAERS Safety Report 14102333 (Version 1)
Quarter: 2017Q4

REPORT INFORMATION
  Report Type: Spontaneous
  Country: FR (occurrence: FR)
  Receive Date: 20171018
  Receipt Date: 20171018
  Transmission Date: 20180321
  Serious: Yes (Hospitalization)
  Sender: FDA-Public Use
  Company Number: FR-MERCK KGAA-2030468

PATIENT
  Age: 82 Year
  Sex: Female

DRUGS (1)
  1. NOVOTHYROX [Suspect]
     Active Substance: LEVOTHYROXINE SODIUM
     Indication: THYROID DISORDER
     Dates: start: 201703

REACTIONS (5)
  - Gastrointestinal disorder [None]
  - Feeling cold [None]
  - Chest discomfort [None]
  - Palpitations [None]
  - Dizziness [None]

NARRATIVE: CASE EVENT DATE: 201703
